FAERS Safety Report 5928616-1 (Version None)
Quarter: 2008Q4

REPORT INFORMATION
  Report Type: 
  Country: None (occurrence: None)
  Receive Date: 20081021
  Receipt Date: 20081006
  Transmission Date: 20090506
  Serious: Yes (Other)
  Sender: FDA-Public Use
  Company Number: 2008S1018239

PATIENT
  Age: 67 Year
  Sex: Male

DRUGS (10)
  1. AMITRIPTYLINE HYDROCHLORIDE [Suspect]
     Indication: ENURESIS
     Dosage: 100 MG;
  2. RISPERDAL CONSTA [Suspect]
     Indication: SCHIZOPHRENIA
     Dosage: 50 MG; ; INTRAMUSCULAR, 25 MG; EVERY OTHER WEEK; INTRAMUSCULAR
     Route: 030
  3. ARIPIPRAZOLE [Concomitant]
  4. ASPIRIN [Concomitant]
  5. BISOPROLOL FUMARATE [Concomitant]
  6. DEXTROSE [Concomitant]
  7. FOLIC ACID [Concomitant]
  8. LANSOPRAZOLE [Concomitant]
  9. INSULIN NOVOMIX /01758401/ [Concomitant]
  10. PROCYCLIDINE HYDROCHLORIDE 2MG TAB [Concomitant]

REACTIONS (1)
  - ELECTROCARDIOGRAM QT PROLONGED [None]
